FAERS Safety Report 20502497 (Version 2)
Quarter: 2022Q1

REPORT INFORMATION
  Report Type: Spontaneous
  Country: US (occurrence: US)
  Receive Date: 20220222
  Receipt Date: 20220309
  Transmission Date: 20220423
  Serious: Yes (Hospitalization, Other)
  Sender: FDA-Public Use
  Company Number: US-NOVARTISPH-NVSC2022US036775

PATIENT
  Sex: Male

DRUGS (3)
  1. METOPROLOL [Suspect]
     Active Substance: METOPROLOL
     Indication: Cardiac failure
     Dosage: 2 DOSAGE FORM, BID
     Route: 048
     Dates: start: 2018
  2. METOPROLOL [Suspect]
     Active Substance: METOPROLOL
     Dosage: 37.5 MG, BID
     Route: 048
  3. ENTRESTO [Suspect]
     Active Substance: SACUBITRIL\VALSARTAN
     Indication: Cardiac failure
     Dosage: UNK UNK, BID
     Route: 048
     Dates: start: 2018

REACTIONS (10)
  - Atrial fibrillation [Recovering/Resolving]
  - Shock [Recovered/Resolved]
  - Palpitations [Recovered/Resolved]
  - Hypotension [Unknown]
  - Fall [Recovered/Resolved]
  - Balance disorder [Recovered/Resolved]
  - Dizziness [Recovered/Resolved]
  - Weight abnormal [Recovered/Resolved]
  - Heart rate increased [Unknown]
  - Somnolence [Not Recovered/Not Resolved]

NARRATIVE: CASE EVENT DATE: 20180101
